FAERS Safety Report 5848610-9 (Version None)
Quarter: 2008Q3

REPORT INFORMATION
  Report Type: 
  Country: None (occurrence: None)
  Receive Date: 20080818
  Receipt Date: 20080207
  Transmission Date: 20090109
  Serious: No
  Sender: FDA-Public Use
  Company Number: US-BRISTOL-MYERS SQUIBB COMPANY-14068829

PATIENT
  Sex: Female

DRUGS (2)
  1. REYATAZ [Suspect]
     Route: 048
  2. ZERIT [Suspect]
     Route: 048

REACTIONS (1)
  - PREGNANCY [None]
